FAERS Safety Report 4719684-3 (Version None)
Quarter: 2005Q3

REPORT INFORMATION
  Report Type: 
  Country: None (occurrence: None)
  Receive Date: 20050721
  Receipt Date: 20040615
  Transmission Date: 20060218
  Serious: No
  Sender: FDA-Public Use
  Company Number: US-GLAXOSMITHKLINE-A0514678A

PATIENT
  Age: 66 Year
  Sex: Male

DRUGS (5)
  1. AVANDIA [Suspect]
     Dosage: 8MG PER DAY
     Route: 048
     Dates: start: 20040501, end: 20040601
  2. GLUCOPHAGE [Concomitant]
  3. STARLIX [Concomitant]
  4. PLAVIX [Concomitant]
  5. ATENOLOL [Concomitant]

REACTIONS (1)
  - DRUG INEFFECTIVE [None]
